FAERS Safety Report 10248907 (Version 1)
Quarter: 2014Q2

REPORT INFORMATION
  Report Type: Spontaneous
  Country: BR (occurrence: BR)
  Receive Date: 20140620
  Receipt Date: 20140620
  Transmission Date: 20141212
  Serious: Yes (Hospitalization)
  Sender: FDA-Public Use
  Company Number: BR-ASTRAZENECA-2014SE44447

PATIENT
  Age: 58 Year
  Sex: Male
  Weight: 70 kg

DRUGS (4)
  1. NEXIUM [Suspect]
     Indication: GASTRIC ULCER
     Route: 048
  2. CRESTOR [Suspect]
     Indication: BLOOD CHOLESTEROL INCREASED
     Route: 048
     Dates: start: 2010
  3. BRILINTA [Suspect]
     Route: 048
     Dates: start: 2014, end: 201405
  4. UNKNOWN CONCOMITANT DRUGS [Concomitant]

REACTIONS (4)
  - Myocardial infarction [Recovered/Resolved]
  - Blood cholesterol increased [Unknown]
  - Off label use [Not Recovered/Not Resolved]
  - Intentional product misuse [Unknown]
